FAERS Safety Report 9437071 (Version 1)
Quarter: 2013Q3

REPORT INFORMATION
  Report Type: Spontaneous
  Country: JP (occurrence: JP)
  Receive Date: 20130802
  Receipt Date: 20130802
  Transmission Date: 20140515
  Serious: Yes (Other)
  Sender: FDA-Public Use
  Company Number: JP-ASTELLAS-2013JP008015

PATIENT
  Age: 82 Year
  Sex: Female

DRUGS (6)
  1. VESICARE [Suspect]
     Indication: HYPERTONIC BLADDER
     Dosage: 5 MG, UID/QD
     Route: 048
     Dates: start: 201305, end: 20130725
  2. NORVASC [Suspect]
     Dosage: 5 MG, UNKNOWN/D
     Route: 048
     Dates: end: 20130725
  3. TAKEPRON [Suspect]
     Dosage: 15 MG, UNKNOWN/D
     Route: 048
     Dates: end: 20130725
  4. MYSLEE [Concomitant]
     Indication: INSOMNIA
     Dosage: 10 MG, UID/QD
     Route: 048
  5. SOLANAX [Concomitant]
     Dosage: 0.4 MG, UNKNOWN/D
     Route: 048
  6. HALCION [Concomitant]
     Dosage: 0.25 MG, UNKNOWN/D
     Route: 048

REACTIONS (1)
  - Platelet count decreased [Unknown]
